FAERS Safety Report 7611472-3 (Version None)
Quarter: 2011Q3

REPORT INFORMATION
  Report Type: 
  Country: None (occurrence: None)
  Receive Date: 20110715
  Receipt Date: 20110630
  Transmission Date: 20111222
  Serious: Yes (Other)
  Sender: FDA-Public Use
  Company Number: US-BAYER-2011-058373

PATIENT
  Age: 50 Year
  Sex: Female
  Weight: 79 kg

DRUGS (1)
  1. ASPIRIN [Suspect]
     Indication: TOOTHACHE
     Dosage: 1 DF, PRN
     Route: 048
     Dates: start: 20110629, end: 20110629

REACTIONS (2)
  - FOREIGN BODY [None]
  - DYSPNOEA [None]
